FAERS Safety Report 6872943-0 (Version None)
Quarter: 2010Q3

REPORT INFORMATION
  Report Type: 
  Country: None (occurrence: None)
  Receive Date: 20100721
  Receipt Date: 20100712
  Transmission Date: 20110219
  Serious: Yes (Other)
  Sender: FDA-Public Use
  Company Number: CL-183-2010

PATIENT
  Sex: Female

DRUGS (3)
  1. CIPROFLOXACIN [Suspect]
  2. LIPITOR [Suspect]
     Indication: CAROTID ARTERY OCCLUSION
  3. ASPIRIN [Suspect]
     Dosage: 325MG

REACTIONS (2)
  - DRUG INTERACTION [None]
  - WHITE BLOOD CELL COUNT INCREASED [None]
